FAERS Safety Report 7091549-4 (Version None)
Quarter: 2010Q4

REPORT INFORMATION
  Report Type: 
  Country: None (occurrence: None)
  Receive Date: 20101105
  Receipt Date: 20101105
  Transmission Date: 20110411
  Serious: Yes (Life-Threatening, Hospitalization)
  Sender: FDA-Public Use
  Company Number: None

PATIENT
  Age: 55 Year
  Sex: Male
  Weight: 72.5755 kg

DRUGS (1)
  1. METHOTREXATE INJECTION USP 50 MG BEN VENUE LABORATORIES INC. [Suspect]
     Indication: LEUKAEMIA
     Dosage: 50 MG
     Dates: start: 20101020, end: 20101025

REACTIONS (2)
  - NERVOUS SYSTEM DISORDER [None]
  - PRODUCT QUALITY ISSUE [None]
